FAERS Safety Report 16139693 (Version 3)
Quarter: 2019Q3

REPORT INFORMATION
  Report Type: Spontaneous
  Country: JP (occurrence: JP)
  Receive Date: 20190401
  Receipt Date: 20190814
  Transmission Date: 20191004
  Serious: Yes (Hospitalization)
  Sender: FDA-Public Use
  Company Number: JP-BAUSCH-BL-2019-007811

PATIENT
  Age: 60 Year
  Sex: Male
  Weight: 56 kg

DRUGS (3)
  1. LUMICEF [Suspect]
     Active Substance: BRODALUMAB
     Dosage: SYRINGE, DURATION: 2 MONTHS 6 DAYS
     Route: 058
     Dates: start: 20180824, end: 20181029
  2. LUMICEF [Suspect]
     Active Substance: BRODALUMAB
     Dosage: SYRINGE, DURATION: 1 MONTHS 27 DAYS
     Route: 058
     Dates: start: 20181127, end: 20190122
  3. LUMICEF [Suspect]
     Active Substance: BRODALUMAB
     Indication: PSORIASIS
     Dosage: SYRINGE
     Route: 058
     Dates: start: 20180817, end: 20180817

REACTIONS (2)
  - Rash pustular [Recovering/Resolving]
  - Aspergillus infection [Recovering/Resolving]

NARRATIVE: CASE EVENT DATE: 20190214
